FAERS Safety Report 8917870 (Version 2)
Quarter: 2012Q4

REPORT INFORMATION
  Report Type: 
  Country: US (occurrence: US)
  Receive Date: 20121120
  Receipt Date: 20121128
  Transmission Date: 20130627
  Serious: Yes (Death)
  Sender: FDA-Public Use
  Company Number: US-GILEAD-2012-0064703

PATIENT
  Age: 30 Year
  Sex: Female

DRUGS (13)
  1. CAYSTON [Suspect]
     Indication: CYSTIC FIBROSIS
     Dosage: UNK
     Dates: start: 2010, end: 20121101
  2. CAYSTON [Suspect]
     Indication: PSEUDOMONAS INFECTION
  3. SCOPOLAMINE /00008701/ [Concomitant]
     Indication: NAUSEA
     Dosage: UNK
     Dates: start: 20111107, end: 20111107
  4. LORAZEPAM [Concomitant]
  5. PULMOZYME [Concomitant]
     Indication: CYSTIC FIBROSIS
     Dosage: UNK
     Dates: end: 20111107
  6. ALBUTEROL                          /00139501/ [Concomitant]
     Indication: CYSTIC FIBROSIS
     Dosage: UNK
     Dates: end: 20111107
  7. AZITHROMYCIN [Concomitant]
     Indication: CYSTIC FIBROSIS
     Dosage: UNK
     Dates: end: 20111107
  8. NEXIUM                             /01479302/ [Concomitant]
     Indication: GASTROOESOPHAGEAL REFLUX DISEASE
     Dosage: UNK
     Dates: end: 20111107
  9. PREDNISONE [Concomitant]
     Indication: CYSTIC FIBROSIS
     Dosage: UNK
     Dates: end: 20111107
  10. NORCO [Concomitant]
     Indication: PAIN
     Dosage: UNK
     Dates: end: 20111107
  11. CREON [Concomitant]
     Indication: PANCREATIC INSUFFICIENCY
     Dosage: UNK
     Dates: end: 20111107
  12. LASIX                              /00032601/ [Concomitant]
     Indication: OEDEMA
     Dosage: UNK
     Dates: end: 20111107
  13. ALDACTONE                          /00006201/ [Concomitant]
     Indication: OEDEMA
     Dosage: UNK
     Dates: end: 20111107

REACTIONS (1)
  - Respiratory failure [Fatal]
